FAERS Safety Report 10179772 (Version 1)
Quarter: 2014Q2

REPORT INFORMATION
  Report Type: Spontaneous
  Country: US (occurrence: US)
  Receive Date: 20140519
  Receipt Date: 20140519
  Transmission Date: 20141212
  Serious: No
  Sender: FDA-Public Use
  Company Number: US-AMGEN INC.-USASP2013083153

PATIENT
  Age: 73 Year
  Sex: Female

DRUGS (7)
  1. PROLIA [Suspect]
     Indication: OSTEOPOROSIS POSTMENOPAUSAL
     Dosage: UNK
     Route: 065
     Dates: start: 20131120
  2. CALCIUM [Concomitant]
  3. VITAMIN D                          /00107901/ [Concomitant]
  4. OCUVITE                            /01053801/ [Concomitant]
  5. LEVOTHYROXINE [Concomitant]
  6. TRAMADOL [Concomitant]
     Indication: PAIN
     Dosage: UNK UNK, AS NECESSARY
  7. CEFUROXIME [Concomitant]
     Indication: EAR PAIN

REACTIONS (10)
  - Injection site pain [Recovered/Resolved]
  - Aphasia [Recovered/Resolved]
  - Hypoaesthesia [Unknown]
  - Dry mouth [Recovered/Resolved]
  - Dry throat [Recovered/Resolved]
  - Dysphonia [Recovered/Resolved]
  - Poor quality sleep [Recovered/Resolved]
  - Dysphagia [Unknown]
  - Nausea [Recovered/Resolved]
  - Decreased appetite [Unknown]
